FAERS Safety Report 16791769 (Version 4)
Quarter: 2019Q4

REPORT INFORMATION
  Report Type: Spontaneous
  Country: BR (occurrence: BR)
  Receive Date: 20190910
  Receipt Date: 20191023
  Transmission Date: 20200122
  Serious: Yes (Other)
  Sender: FDA-Public Use
  Company Number: PHHY2019BR210541

PATIENT
  Age: 67 Year
  Sex: Female

DRUGS (1)
  1. TRAVATAN Z [Suspect]
     Active Substance: TRAVOPROST
     Indication: PRODUCT USED FOR UNKNOWN INDICATION
     Dosage: UNK UNK, QD
     Route: 065

REACTIONS (4)
  - Retinal vascular disorder [Unknown]
  - Eye haemorrhage [Unknown]
  - Product container seal issue [Unknown]
  - Insomnia [Unknown]

NARRATIVE: CASE EVENT DATE: 20190902
